FAERS Safety Report 8262195-1 (Version None)
Quarter: 2012Q2

REPORT INFORMATION
  Report Type: 
  Country: None (occurrence: None)
  Receive Date: 20120405
  Receipt Date: 20120319
  Transmission Date: 20120825
  Serious: Yes (Death, Other)
  Sender: FDA-Public Use
  Company Number: DK-ROCHE-1050001

PATIENT
  Age: 81 Year
  Sex: Male

DRUGS (4)
  1. METHYLPREDNISOLONE [Suspect]
     Indication: SCLERITIS
     Dosage: FOR 3 DAYS
     Route: 042
  2. RITUXIMAB [Suspect]
     Indication: SCLERITIS
  3. PREDNISOLONE [Suspect]
     Indication: SCLERITIS
     Dosage: TAPERING FROM 100 MG TO 30 MG DAILY IN 3 WEEKS
     Route: 048
  4. RANIBIZUMAB [Suspect]
     Indication: AGE-RELATED MACULAR DEGENERATION
     Route: 050

REACTIONS (3)
  - SCLERITIS [None]
  - PARANASAL SINUS MUCOSAL HYPERTROPHY [None]
  - PNEUMOCYSTIS JIROVECI PNEUMONIA [None]
